FAERS Safety Report 7285069-1 (Version None)
Quarter: 2011Q1

REPORT INFORMATION
  Report Type: 
  Country: None (occurrence: None)
  Receive Date: 20110210
  Receipt Date: 20110131
  Transmission Date: 20110831
  Serious: Yes (Other)
  Sender: FDA-Public Use
  Company Number: ZA-SANOFI-AVENTIS-2011SA003745

PATIENT
  Age: 50 Year
  Sex: Male

DRUGS (5)
  1. KETEK [Suspect]
     Indication: PNEUMONIA
     Route: 048
     Dates: start: 20110104, end: 20110108
  2. PURICOS [Concomitant]
     Indication: GOUT
     Route: 065
  3. THEOPHEN [Concomitant]
     Route: 065
     Dates: start: 20110104
  4. PANAFCORT [Concomitant]
     Route: 065
     Dates: start: 20110104
  5. MEFLIAM [Interacting]
     Indication: MALARIA PROPHYLAXIS
     Route: 065
     Dates: start: 20101201

REACTIONS (3)
  - DRUG INTERACTION [None]
  - MALARIA [None]
  - MALAISE [None]
